FAERS Safety Report 8736254 (Version 4)
Quarter: 2012Q4

REPORT INFORMATION
  Report Type: 
  Country: US (occurrence: US)
  Receive Date: 20120822
  Receipt Date: 20121119
  Transmission Date: 20130627
  Serious: Yes (Hospitalization, Other)
  Sender: FDA-Public Use
  Company Number: US-ASTRAZENECA-2012SE57440

PATIENT
  Age: 1023 Month
  Sex: Male

DRUGS (4)
  1. SEROQUEL [Suspect]
     Indication: SLEEP DISORDER
     Route: 048
  2. SEROQUEL [Suspect]
     Indication: NIGHTMARE
     Route: 048
  3. SEROQUEL [Suspect]
     Indication: SLEEP DISORDER
     Route: 048
  4. SEROQUEL [Suspect]
     Indication: NIGHTMARE
     Route: 048

REACTIONS (11)
  - Lower limb fracture [Unknown]
  - Fall [Unknown]
  - Concussion [Unknown]
  - Loss of consciousness [Unknown]
  - Insomnia [Unknown]
  - Depression [Unknown]
  - Chronic obstructive pulmonary disease [Unknown]
  - Transient global amnesia [Unknown]
  - Nightmare [Unknown]
  - Off label use [Unknown]
  - Drug dose omission [Unknown]
